FAERS Safety Report 7315582-X (Version None)
Quarter: 2011Q1

REPORT INFORMATION
  Report Type: 
  Country: None (occurrence: None)
  Receive Date: 20110225
  Receipt Date: 20110216
  Transmission Date: 20110831
  Serious: Yes (Hospitalization)
  Sender: FDA-Public Use
  Company Number: JP-BAYER-200914402BYL

PATIENT
  Age: 55 Year
  Sex: Male
  Weight: 78 kg

DRUGS (3)
  1. NEXAVAR [Suspect]
     Dosage: 600 MG (DAILY DOSE), , ORAL
     Route: 048
     Dates: start: 20090810, end: 20091019
  2. NEXAVAR [Suspect]
     Dosage: 400 MG (DAILY DOSE), , ORAL
     Route: 048
     Dates: start: 20090611, end: 20090809
  3. NEXAVAR [Suspect]
     Indication: RENAL CELL CARCINOMA
     Route: 048
     Dates: start: 20090428, end: 20090610

REACTIONS (14)
  - BLOOD LACTATE DEHYDROGENASE INCREASED [None]
  - PLATELET COUNT INCREASED [None]
  - ASPARTATE AMINOTRANSFERASE INCREASED [None]
  - HYPERTENSION [None]
  - GAMMA-GLUTAMYLTRANSFERASE INCREASED [None]
  - VOMITING [None]
  - NAUSEA [None]
  - BLOOD TRIGLYCERIDES INCREASED [None]
  - BLOOD AMYLASE INCREASED [None]
  - C-REACTIVE PROTEIN INCREASED [None]
  - ALANINE AMINOTRANSFERASE INCREASED [None]
  - BLOOD BILIRUBIN INCREASED [None]
  - BLOOD CHOLESTEROL INCREASED [None]
  - BLOOD ALKALINE PHOSPHATASE INCREASED [None]
